FAERS Safety Report 11308957 (Version 1)
Quarter: 2015Q3

REPORT INFORMATION
  Report Type: Spontaneous
  Country: US (occurrence: US)
  Receive Date: 20150724
  Receipt Date: 20150724
  Transmission Date: 20151125
  Serious: Yes (Hospitalization, Other)
  Sender: FDA-Public Use
  Company Number: US-AMGEN-USASP2015073596

PATIENT
  Age: 60 Year
  Sex: Male

DRUGS (1)
  1. ENBREL [Suspect]
     Active Substance: ETANERCEPT
     Indication: RHEUMATOID ARTHRITIS
     Dosage: UNK
     Route: 065
     Dates: start: 2013, end: 201506

REACTIONS (10)
  - Pain [Unknown]
  - Infection [Unknown]
  - Mobility decreased [Unknown]
  - Nightmare [Unknown]
  - Joint swelling [Unknown]
  - Peripheral swelling [Unknown]
  - Pyrexia [Unknown]
  - Joint warmth [Unknown]
  - Hospitalisation [Recovered/Resolved]
  - Arthralgia [Unknown]

NARRATIVE: CASE EVENT DATE: 2015
